FAERS Safety Report 13365777 (Version 1)
Quarter: 2017Q1

REPORT INFORMATION
  Report Type: Spontaneous
  Country: US (occurrence: US)
  Receive Date: 20170323
  Receipt Date: 20170323
  Transmission Date: 20170429
  Serious: No
  Sender: FDA-Public Use
  Company Number: US-WARNER CHILCOTT-2016-002276

PATIENT
  Age: 65 Year
  Sex: Female

DRUGS (1)
  1. ESTRACE [Suspect]
     Active Substance: ESTRADIOL
     Dosage: 4 G, QD
     Route: 067
     Dates: start: 201609, end: 20161004

REACTIONS (8)
  - Muscle spasms [Not Recovered/Not Resolved]
  - Dysuria [Not Recovered/Not Resolved]
  - Incorrect dose administered [Unknown]
  - Contraindicated product administered [Unknown]
  - Vaginal discharge [Not Recovered/Not Resolved]
  - Vaginal disorder [Not Recovered/Not Resolved]
  - Application site discharge [Unknown]
  - Vaginal lesion [Not Recovered/Not Resolved]

NARRATIVE: CASE EVENT DATE: 201609
